FAERS Safety Report 4788251-8 (Version None)
Quarter: 2005Q4

REPORT INFORMATION
  Report Type: 
  Country: None (occurrence: None)
  Receive Date: 20051003
  Receipt Date: 20050919
  Transmission Date: 20060501
  Serious: Yes (Hospitalization)
  Sender: FDA-Public Use
  Company Number: ERD2002A00082

PATIENT
  Age: 61 Year
  Sex: Male

DRUGS (8)
  1. PIOGLITAZONE HCL [Suspect]
     Indication: DIABETES MELLITUS NON-INSULIN-DEPENDENT
     Dosage: 15 MG ORAL
     Route: 048
     Dates: start: 20020425, end: 20020428
  2. RENITEC (VASERETIC) [Concomitant]
  3. EMCONCOR (BISOPROLOL) [Concomitant]
  4. DIGOXIN [Concomitant]
  5. ZANIDIP (LERCANIDIPINE HYDROCHLORIDE) [Concomitant]
  6. LIPITOR [Concomitant]
  7. METFORMIN HCL [Concomitant]
  8. PROSCAR [Concomitant]

REACTIONS (5)
  - ATRIAL FIBRILLATION [None]
  - CARDIAC FAILURE [None]
  - CONDITION AGGRAVATED [None]
  - DYSPNOEA [None]
  - TACHYCARDIA [None]
